FAERS Safety Report 5106913-X (Version None)
Quarter: 2006Q3

REPORT INFORMATION
  Report Type: 
  Country: None (occurrence: None)
  Receive Date: 20060913
  Receipt Date: 20060829
  Transmission Date: 20061208
  Serious: Yes (Other)
  Sender: FDA-Public Use
  Company Number: US-2006-009125

PATIENT
  Age: 37 Year
  Sex: Male

DRUGS (1)
  1. BETASERON [Suspect]
     Indication: MULTIPLE SCLEROSIS
     Dosage: 4 MIU, EVERY 2 D, SUBCUTANEOUS
     Route: 058
     Dates: start: 20060323

REACTIONS (2)
  - DIPLOPIA [None]
  - OSCILLOPSIA [None]
